FAERS Safety Report 22134276 (Version 1)
Quarter: 2023Q1

REPORT INFORMATION
  Report Type: Spontaneous
  Country: US (occurrence: None)
  Receive Date: 20230324
  Receipt Date: 20230324
  Transmission Date: 20230417
  Serious: No
  Sender: FDA-Public Use
  Company Number: 2023A048395

PATIENT
  Sex: Male
  Weight: 136.1 kg

DRUGS (1)
  1. FARXIGA [Suspect]
     Active Substance: DAPAGLIFLOZIN PROPANEDIOL
     Route: 048
     Dates: start: 20230224

REACTIONS (8)
  - Illness [Not Recovered/Not Resolved]
  - Vertigo [Unknown]
  - Dizziness [Unknown]
  - Nervousness [Unknown]
  - Feeling jittery [Unknown]
  - Abdominal pain upper [Unknown]
  - Vomiting [Unknown]
  - Blood glucose decreased [Unknown]
